FAERS Safety Report 5991393-2 (Version None)
Quarter: 2008Q4

REPORT INFORMATION
  Report Type: 
  Country: None (occurrence: None)
  Receive Date: 20081211
  Receipt Date: 20080428
  Transmission Date: 20090506
  Serious: No
  Sender: FDA-Public Use
  Company Number: US-AMGEN-KDL276615

PATIENT
  Sex: Male

DRUGS (2)
  1. ENBREL [Suspect]
     Indication: RHEUMATOID ARTHRITIS
     Route: 058
     Dates: start: 20070831
  2. LEFLUNOMIDE [Concomitant]
     Dates: start: 20070101

REACTIONS (3)
  - INJECTION SITE PRURITUS [None]
  - JOINT STIFFNESS [None]
  - LOCALISED INFECTION [None]
